FAERS Safety Report 22222010 (Version 4)
Quarter: 2023Q2

REPORT INFORMATION
  Report Type: Spontaneous
  Country: US (occurrence: US)
  Receive Date: 20230418
  Receipt Date: 20230612
  Transmission Date: 20230721
  Serious: No
  Sender: FDA-Public Use
  Company Number: US-ELI_LILLY_AND_COMPANY-US202303017365

PATIENT
  Age: 72 Year
  Sex: Female

DRUGS (8)
  1. ADCIRCA [Suspect]
     Active Substance: TADALAFIL
     Indication: Pulmonary arterial hypertension
     Dosage: 40 MG, DAILY
     Route: 048
     Dates: start: 202211
  2. ADCIRCA [Suspect]
     Active Substance: TADALAFIL
     Dosage: 40 MG, DAILY
     Route: 048
     Dates: start: 202301
  3. TYVASO [Suspect]
     Active Substance: TREPROSTINIL
     Indication: Pulmonary arterial hypertension
     Dosage: UNK UNK, QID (2 BREATHS)
     Route: 055
     Dates: start: 20230326
  4. TYVASO [Suspect]
     Active Substance: TREPROSTINIL
     Dosage: UNK UNK, QID (2 PUFF)
     Route: 055
     Dates: start: 20230409
  5. TYVASO [Suspect]
     Active Substance: TREPROSTINIL
     Dosage: 2 DOSAGE FORM, QID (1 OR 2 BREATHS PER DOSE FOUR TIMES DAILY)
     Route: 055
  6. TYVASO [Suspect]
     Active Substance: TREPROSTINIL
     Dosage: UNK UNK, UNKNOWN (1 BREATH TID AND 2 BREATHS DAILY)
     Route: 055
     Dates: start: 202303
  7. TYVASO [Suspect]
     Active Substance: TREPROSTINIL
     Dosage: 4 BREATHS, QID
     Route: 055
     Dates: start: 202303
  8. OPSUMIT [Concomitant]
     Active Substance: MACITENTAN
     Indication: Pulmonary arterial hypertension
     Dosage: UNK UNK, UNKNOWN
     Route: 065

REACTIONS (7)
  - Cough [Not Recovered/Not Resolved]
  - Rhinorrhoea [Not Recovered/Not Resolved]
  - Feeling hot [Unknown]
  - Dizziness [Not Recovered/Not Resolved]
  - Abdominal discomfort [Unknown]
  - Headache [Unknown]
  - Fatigue [Not Recovered/Not Resolved]

NARRATIVE: CASE EVENT DATE: 20230301
